FAERS Safety Report 6234825-7 (Version None)
Quarter: 2009Q2

REPORT INFORMATION
  Report Type: 
  Country: None (occurrence: None)
  Receive Date: 20090616
  Receipt Date: 20090601
  Transmission Date: 20091009
  Serious: Yes (Other)
  Sender: FDA-Public Use
  Company Number: 09-062

PATIENT

DRUGS (1)
  1. CEFOTAXIME [Suspect]
     Dosage: 3-4G/DAY

REACTIONS (11)
  - AGITATION [None]
  - CONFUSIONAL STATE [None]
  - CONVULSION [None]
  - DEPRESSED LEVEL OF CONSCIOUSNESS [None]
  - DISORIENTATION [None]
  - ENCEPHALOPATHY [None]
  - GRAND MAL CONVULSION [None]
  - HALLUCINATION [None]
  - MYOCLONUS [None]
  - STATUS EPILEPTICUS [None]
  - TREMOR [None]
